FAERS Safety Report 21599798 (Version 1)
Quarter: 2022Q4

REPORT INFORMATION
  Report Type: Report from Study
  Country: US (occurrence: US)
  Receive Date: 20221115
  Receipt Date: 20221115
  Transmission Date: 20230113
  Serious: No
  Sender: FDA-Public Use
  Company Number: US-ABBVIE-4199955

PATIENT
  Sex: Male

DRUGS (11)
  1. IMBRUVICA [Suspect]
     Active Substance: IBRUTINIB
     Indication: Lymphocytic leukaemia
     Route: 048
  2. Pantoprazole Sodium Oral Tablet Del [Concomitant]
     Indication: Product used for unknown indication
     Route: 048
  3. Ibuprofen Oral Tablet 800 MG [Concomitant]
     Indication: Product used for unknown indication
     Route: 048
  4. metFORMIN HCl Oral Tablet 1000 MG [Concomitant]
     Indication: Product used for unknown indication
     Route: 048
  5. CORTISONE ACETATE [Concomitant]
     Active Substance: CORTISONE ACETATE
     Indication: Product used for unknown indication
     Route: 048
  6. Magnesium Oxide Oral Tablet 250 [Concomitant]
     Indication: Product used for unknown indication
     Route: 048
  7. Danazol Oral Capsule 200 MG [Concomitant]
     Indication: Product used for unknown indication
     Route: 048
  8. VITAMIN D [Concomitant]
     Active Substance: VITAMIN D NOS
     Indication: Product used for unknown indication
  9. HYDROCORTISONE [Concomitant]
     Active Substance: HYDROCORTISONE
     Indication: Product used for unknown indication
  10. Lisinopril Oral Tablet 10 MG [Concomitant]
     Indication: Product used for unknown indication
     Route: 048
  11. VITAMINS [Concomitant]
     Active Substance: VITAMINS
     Indication: Product used for unknown indication

REACTIONS (1)
  - Epistaxis [Recovered/Resolved]
